FAERS Safety Report 9033804 (Version 1)
Quarter: 2013Q1

REPORT INFORMATION
  Report Type: Spontaneous
  Country: BR (occurrence: BR)
  Receive Date: 20130128
  Receipt Date: 20130128
  Transmission Date: 20140127
  Serious: Yes (Hospitalization, Other)
  Sender: FDA-Public Use
  Company Number: BR-AMGEN-QUU443738

PATIENT
  Age: 51 Year
  Sex: Female
  Weight: 68 kg

DRUGS (17)
  1. ENBREL [Suspect]
     Indication: RHEUMATOID ARTHRITIS
     Dosage: 25 MG, UNK
     Route: 058
     Dates: start: 200605, end: 201208
  2. ENBREL [Suspect]
     Indication: PSORIASIS
  3. FERROUS SULFATE [Concomitant]
     Dosage: UNK
  4. FERROUS SULFATE [Concomitant]
     Dosage: UNK
  5. DIAZEPAM [Concomitant]
     Indication: DEPRESSION
     Dosage: 20 MG, BID
  6. OMEPRAZOLE [Concomitant]
     Indication: ABDOMINAL PAIN UPPER
     Dosage: 20 MG, 2X/DAY
  7. PARACETAMOL [Concomitant]
     Indication: PAIN
     Dosage: 750 MG, AS NEEDED
  8. SERTRALINE [Concomitant]
     Dosage: UNK
  9. AMOXICILLIN [Concomitant]
     Dosage: UNK
  10. TRIBENOSIDE [Concomitant]
     Dosage: UNK
  11. CITALOPRAM [Concomitant]
     Dosage: 25 MG, 1X/DAY AT NIGHT
  12. CLIMEN                             /01116101/ [Concomitant]
     Dosage: UNK UNK, QD
  13. CLIMENE [Concomitant]
     Dosage: UNK
  14. BETATRINTA [Concomitant]
     Dosage: UNK
  15. DUOFLAM                            /00582101/ [Concomitant]
     Dosage: UNK
  16. FUROSEMIDE [Concomitant]
     Indication: DEPRESSION
     Dosage: UNK
  17. DUOFLAM [Concomitant]
     Dosage: UNK

REACTIONS (21)
  - Dyspnoea [Unknown]
  - Swelling [Unknown]
  - Hypersensitivity [Recovered/Resolved]
  - Wound haemorrhage [Unknown]
  - Drug hypersensitivity [Unknown]
  - Headache [Not Recovered/Not Resolved]
  - Rash pustular [Unknown]
  - Nervousness [Unknown]
  - Weight increased [Not Recovered/Not Resolved]
  - Injection site pain [Unknown]
  - Cardiac disorder [Unknown]
  - Tachycardia [Unknown]
  - Neck pain [Unknown]
  - Muscle rigidity [Unknown]
  - Pain [Not Recovered/Not Resolved]
  - Bone pain [Not Recovered/Not Resolved]
  - Facial pain [Not Recovered/Not Resolved]
  - Food intolerance [Unknown]
  - Feeling abnormal [Unknown]
  - Wound complication [Unknown]
  - Psoriasis [Unknown]
